FAERS Safety Report 22644330 (Version 1)
Quarter: 2023Q2

REPORT INFORMATION
  Report Type: Spontaneous
  Country: FI (occurrence: FI)
  Receive Date: 20230627
  Receipt Date: 20230627
  Transmission Date: 20230722
  Serious: Yes (Other)
  Sender: FDA-Public Use
  Company Number: None

PATIENT

DRUGS (2)
  1. LAMICTAL [Suspect]
     Active Substance: LAMOTRIGINE
     Indication: Mood altered
     Dosage: 400 MG, QD(400,MG,DAILY )
     Route: 048
     Dates: start: 20220401
  2. QUETIAPINE FUMARATE [Concomitant]
     Active Substance: QUETIAPINE FUMARATE
     Indication: Mood altered
     Dosage: 50 MG, QD(50,MG,DAILY)
     Route: 048
     Dates: start: 20220201

REACTIONS (4)
  - Cataplexy [Unknown]
  - Hypnagogic hallucination [Unknown]
  - Nystagmus [Unknown]
  - Fatigue [Unknown]
